FAERS Safety Report 5409346-1 (Version None)
Quarter: 2007Q3

REPORT INFORMATION
  Report Type: 
  Country: None (occurrence: None)
  Receive Date: 20070809
  Receipt Date: 20070730
  Transmission Date: 20080115
  Serious: Yes (Other)
  Sender: FDA-Public Use
  Company Number: US-JNJFOC-20070700944

PATIENT
  Age: 18 Year
  Sex: Female

DRUGS (2)
  1. MINOCYCLINE HCL [Suspect]
     Route: 048
  2. MINOCYCLINE HCL [Suspect]
     Indication: ACNE
     Dosage: USED WHEN THE PATIENT WAS 15 YEARS OLD
     Route: 048

REACTIONS (1)
  - POLYARTERITIS NODOSA [None]
